FAERS Safety Report 8977903 (Version 1)
Quarter: 2012Q4

REPORT INFORMATION
  Report Type: 
  Country: MX (occurrence: MX)
  Receive Date: 20121220
  Receipt Date: 20121220
  Transmission Date: 20130627
  Serious: Yes (Other)
  Sender: FDA-Public Use
  Company Number: PHHY2012MX117279

PATIENT
  Age: 64 Year
  Sex: Female

DRUGS (5)
  1. ACLASTA [Suspect]
     Indication: OSTEOPOROSIS
     Dosage: 5 mg/100ml, UNK
     Route: 042
     Dates: start: 2011
  2. ACLASTA [Suspect]
     Dosage: 5 mg/100ml, UNK
     Route: 042
     Dates: start: 201201
  3. VASCULFLOW [Concomitant]
     Dosage: 2 UKN, daily
  4. CHONDROITIN SULFATE [Concomitant]
  5. DIACEREIN [Concomitant]

REACTIONS (7)
  - Intervertebral disc protrusion [Not Recovered/Not Resolved]
  - Nerve root injury [Not Recovered/Not Resolved]
  - Pain [Not Recovered/Not Resolved]
  - Ligament sprain [Not Recovered/Not Resolved]
  - Face injury [Not Recovered/Not Resolved]
  - Rhinitis [Not Recovered/Not Resolved]
  - Fall [Not Recovered/Not Resolved]
